FAERS Safety Report 21290271 (Version 2)
Quarter: 2022Q3

REPORT INFORMATION
  Report Type: Spontaneous
  Country: US (occurrence: US)
  Receive Date: 20220902
  Receipt Date: 20220905
  Transmission Date: 20221026
  Serious: Yes (Other)
  Sender: FDA-Public Use
  Company Number: US-ALLERGAN-2227389US

PATIENT
  Sex: Male

DRUGS (1)
  1. VUITY [Suspect]
     Active Substance: PILOCARPINE HYDROCHLORIDE
     Indication: Presbyopia
     Dosage: USING VUITY SPORADICALLY

REACTIONS (7)
  - Retinal tear [Unknown]
  - Vitreous haemorrhage [Recovering/Resolving]
  - Vitreous floaters [Not Recovered/Not Resolved]
  - Vitreous haze [Unknown]
  - Inappropriate schedule of product administration [Unknown]
  - Retinal degeneration [Unknown]
  - Vision blurred [Unknown]

NARRATIVE: CASE EVENT DATE: 20220811
